FAERS Safety Report 12461551 (Version 1)
Quarter: 2016Q2

REPORT INFORMATION
  Report Type: Spontaneous
  Country: US (occurrence: US)
  Receive Date: 20160613
  Receipt Date: 20160613
  Transmission Date: 20160815
  Serious: Yes (Hospitalization)
  Sender: FDA-Public Use
  Company Number: US-UNICHEM LABORATORIES LIMITED-UCM201606-000125

PATIENT
  Age: 48 Year
  Sex: Male

DRUGS (6)
  1. AMLODIPINE [Suspect]
     Active Substance: AMLODIPINE BESYLATE
  2. DOXAZOSIN [Suspect]
     Active Substance: DOXAZOSIN\DOXAZOSIN MESYLATE
  3. HYDRALAZINE [Suspect]
     Active Substance: HYDRALAZINE HYDROCHLORIDE
  4. CARVEDILOL. [Suspect]
     Active Substance: CARVEDILOL
  5. LISINOPRIL. [Suspect]
     Active Substance: LISINOPRIL
  6. HYDROCHLOROTHIAZIDE. [Suspect]
     Active Substance: HYDROCHLOROTHIAZIDE

REACTIONS (5)
  - Supraventricular tachycardia [Unknown]
  - Acute kidney injury [Unknown]
  - Unresponsive to stimuli [Unknown]
  - Overdose [Unknown]
  - Shock [Unknown]
